FAERS Safety Report 15714463 (Version 1)
Quarter: 2018Q4

REPORT INFORMATION
  Report Type: Spontaneous
  Country: US (occurrence: US)
  Receive Date: 20181212
  Receipt Date: 20181212
  Transmission Date: 20190205
  Serious: No
  Sender: FDA-Public Use
  Company Number: US-DSJP-DSU-2018-107984

PATIENT

DRUGS (6)
  1. BLADDER MEDICINE [Concomitant]
     Indication: PRODUCT USED FOR UNKNOWN INDICATION
     Dosage: UNK
     Route: 048
  2. BENICAR HCT [Suspect]
     Active Substance: HYDROCHLOROTHIAZIDE\OLMESARTAN MEDOXOMIL
     Dosage: 1 DF (20/12.5 MG), QD
     Route: 048
     Dates: start: 2016, end: 2018
  3. BENICAR HCT [Suspect]
     Active Substance: HYDROCHLOROTHIAZIDE\OLMESARTAN MEDOXOMIL
     Indication: HYPERTENSION
     Dosage: 1 DF (20/12.5 MG), QD
     Route: 048
     Dates: start: 2016, end: 2016
  4. OLMESARTAN HCT AN [Suspect]
     Active Substance: HYDROCHLOROTHIAZIDE\OLMESARTAN MEDOXOMIL
     Indication: HYPERTENSION
     Dosage: 1 DF (20/12.5 MG), QD
     Dates: start: 2018
  5. TEGRETOL [Concomitant]
     Active Substance: CARBAMAZEPINE
     Indication: SEIZURE
     Dosage: UNK
     Route: 048
  6. BENICAR [Suspect]
     Active Substance: OLMESARTAN MEDOXOMIL
     Indication: HYPERTENSION
     Dosage: 20 MG, QD
     Route: 048
     Dates: start: 2016, end: 2016

REACTIONS (5)
  - Eye disorder [Unknown]
  - Headache [Unknown]
  - Drug ineffective [Unknown]
  - Therapeutic response unexpected [Not Recovered/Not Resolved]
  - Eye pain [Unknown]

NARRATIVE: CASE EVENT DATE: 2016
